FAERS Safety Report 9328211 (Version 7)
Quarter: 2017Q2

REPORT INFORMATION
  Report Type: Report from Study
  Country: US (occurrence: US)
  Receive Date: 20130604
  Receipt Date: 20170620
  Transmission Date: 20170830
  Serious: Yes (Death)
  Sender: FDA-Public Use
  Company Number: US-JNJFOC-20130518324

PATIENT
  Age: 42 Year
  Sex: Male
  Weight: 137.44 kg

DRUGS (9)
  1. METHADONE [Concomitant]
     Active Substance: METHADONE HYDROCHLORIDE
     Route: 065
  2. DOXYCYCLINE. [Concomitant]
     Active Substance: DOXYCYCLINE
     Route: 065
     Dates: start: 20121116, end: 20130105
  3. STELARA [Suspect]
     Active Substance: USTEKINUMAB
     Indication: PSORIASIS
     Route: 058
     Dates: start: 20110511
  4. OXYCODONE HCL + ACETAMINOPHEN [Concomitant]
     Indication: RHEUMATOID ARTHRITIS
     Dosage: 10 MG/325
     Route: 065
     Dates: start: 20121116, end: 20130517
  5. STELARA [Suspect]
     Active Substance: USTEKINUMAB
     Indication: PSORIASIS
     Route: 058
     Dates: start: 20110803, end: 20130517
  6. TRICOR [Concomitant]
     Active Substance: FENOFIBRATE
     Indication: BLOOD CHOLESTEROL INCREASED
     Route: 065
     Dates: start: 20121218, end: 20130517
  7. PREDNISONE. [Concomitant]
     Active Substance: PREDNISONE
     Route: 065
  8. SORIATANE [Concomitant]
     Active Substance: ACITRETIN
     Route: 065
  9. PROVENTIL [Concomitant]
     Active Substance: ALBUTEROL
     Route: 055

REACTIONS (1)
  - Hypertensive heart disease [Fatal]

NARRATIVE: CASE EVENT DATE: 20130517
